FAERS Safety Report 14655821 (Version 9)
Quarter: 2020Q3

REPORT INFORMATION
  Report Type: Report from Study
  Country: FR (occurrence: FR)
  Receive Date: 20180319
  Receipt Date: 20200622
  Transmission Date: 20201105
  Serious: Yes (Hospitalization)
  Sender: FDA-Public Use
  Company Number: PHHO2018FR003611

PATIENT
  Age: 56 Year
  Sex: Male
  Weight: 116 kg

DRUGS (12)
  1. CANAKINUMAB. [Suspect]
     Active Substance: CANAKINUMAB
     Indication: DRUG LEVEL
     Dosage: 400 MG, Q4W
     Route: 042
     Dates: start: 20180119, end: 20180119
  2. DILTIAZEM. [Concomitant]
     Active Substance: DILTIAZEM
     Indication: HYPERTENSION
     Dosage: UNK, QD
     Route: 048
     Dates: start: 2013
  3. PHLOROGLUCINOL [Concomitant]
     Active Substance: PHLOROGLUCINOL
     Indication: HEPATIC PAIN
     Dosage: UNK, QD
     Route: 048
     Dates: start: 20180202
  4. PARACETAMOL [Concomitant]
     Active Substance: ACETAMINOPHEN
     Indication: PROCTALGIA
  5. PREDNISOLONE. [Concomitant]
     Active Substance: PREDNISOLONE
     Indication: FACE OEDEMA
     Dosage: UNK
     Route: 065
     Dates: start: 20180209
  6. TITANOREINES A LA LIDOCAINE [Concomitant]
     Indication: RECTAL HAEMORRHAGE
     Dosage: UNK, OT
     Route: 048
     Dates: start: 20180126
  7. PARACETAMOL [Concomitant]
     Active Substance: ACETAMINOPHEN
     Indication: BACK PAIN
     Dosage: UNK, OT
     Route: 048
     Dates: start: 201801
  8. INEXIUM [Concomitant]
     Active Substance: ESOMEPRAZOLE
     Indication: PROPHYLAXIS
     Dosage: UNK
     Route: 065
     Dates: start: 20180202
  9. PDR001 [Suspect]
     Active Substance: SPARTALIZUMAB
     Indication: DRUG LEVEL
     Dosage: 600 MG, Q2MO
     Route: 058
     Dates: start: 20180119, end: 20180119
  10. PARACETAMOL [Concomitant]
     Active Substance: ACETAMINOPHEN
     Indication: HEPATIC PAIN
  11. KARDEGIC [Concomitant]
     Active Substance: ASPIRIN DL-LYSINE
     Indication: PROPHYLAXIS
     Dosage: UNK, QD
     Route: 048
     Dates: start: 1991
  12. PANTOPRAZOLE [Concomitant]
     Active Substance: PANTOPRAZOLE
     Indication: HEPATIC PAIN
     Dosage: UNK, QD
     Route: 048
     Dates: start: 20180202

REACTIONS (1)
  - Myasthenia gravis [Recovered/Resolved]

NARRATIVE: CASE EVENT DATE: 20180216
